FAERS Safety Report 7929997 (Version 28)
Quarter: 2013Q4

REPORT INFORMATION
  Report Type: Spontaneous
  Country: US (occurrence: US)
  Receive Date: 20110504
  Receipt Date: 20131028
  Transmission Date: 20140711
  Serious: Yes (Hospitalization, Other)
  Sender: FDA-Public Use
  Company Number: PHEH2011US00474

PATIENT
  Age: 74 Year
  Sex: Male

DRUGS (6)
  1. ZOMETA [Suspect]
     Indication: METASTASES TO BONE
     Dosage: 3.5 MG, QMO
     Dates: start: 2007, end: 20090911
  2. LORTAB [Concomitant]
  3. CASODEX [Concomitant]
  4. BACTRIUM DS [Concomitant]
  5. ZOLADEX [Concomitant]
  6. VITAMIN D [Concomitant]

REACTIONS (124)
  - Ataxia [Unknown]
  - Syncope [Unknown]
  - Osteonecrosis of jaw [Unknown]
  - Pain [Unknown]
  - Infection [Unknown]
  - Deformity [Unknown]
  - Injury [Unknown]
  - Emotional distress [Unknown]
  - Anxiety [Unknown]
  - Physical disability [Unknown]
  - Tooth abscess [Unknown]
  - Tooth infection [Recovered/Resolved]
  - Postoperative wound infection [Unknown]
  - Periodontitis [Unknown]
  - Myelopathy [Unknown]
  - Lumbar spinal stenosis [Unknown]
  - Vertebral foraminal stenosis [Unknown]
  - Muscular weakness [Unknown]
  - Spinal osteoarthritis [Unknown]
  - Essential hypertension [Unknown]
  - Tendonitis [Unknown]
  - Metastases to spine [Unknown]
  - Arteriosclerosis coronary artery [Unknown]
  - Pulmonary pneumatocele [Unknown]
  - Aortic arteriosclerosis [Unknown]
  - Diverticulum intestinal [Unknown]
  - Sinus bradycardia [Unknown]
  - Bundle branch block left [Unknown]
  - Left atrial dilatation [Unknown]
  - Mitral valve incompetence [Unknown]
  - Aortic valve incompetence [Unknown]
  - Tricuspid valve incompetence [Unknown]
  - Pulmonary valve incompetence [Unknown]
  - Osteoarthritis [Unknown]
  - Hypercholesterolaemia [Unknown]
  - Ventricular hypertrophy [Unknown]
  - Heart valve incompetence [Unknown]
  - Tooth fracture [Unknown]
  - Hemiplegia [Unknown]
  - Sensory loss [Unknown]
  - Toothache [Unknown]
  - Anaemia [Unknown]
  - Spinal cord compression [Unknown]
  - Functional gastrointestinal disorder [Unknown]
  - Neurogenic bladder [Unknown]
  - Intervertebral disc degeneration [Unknown]
  - Urinary retention [Unknown]
  - Gingival swelling [Unknown]
  - Exposed bone in jaw [Unknown]
  - Angina unstable [Unknown]
  - Asthma [Unknown]
  - Hearing impaired [Unknown]
  - Intervertebral disc protrusion [Unknown]
  - Spondylolisthesis [Unknown]
  - Haematochezia [Unknown]
  - Anal sphincter atony [Unknown]
  - Urinary incontinence [Unknown]
  - Haemangioma of bone [Unknown]
  - Lumbar radiculopathy [Unknown]
  - Osteosclerosis [Unknown]
  - Fall [Unknown]
  - Contusion [Unknown]
  - Intervertebral disc space narrowing [Unknown]
  - Facet joint syndrome [Unknown]
  - Pathological fracture [Unknown]
  - Urinary tract infection [Unknown]
  - Neurogenic bowel [Unknown]
  - Vertebral column mass [Unknown]
  - Ligament disorder [Unknown]
  - Hypertrophy [Unknown]
  - Osteolysis [Unknown]
  - Cerebral ventricle dilatation [Unknown]
  - Otitis externa [Unknown]
  - Cellulitis [Unknown]
  - Cerumen impaction [Unknown]
  - Melanocytic naevus [Unknown]
  - Arrhythmia [Unknown]
  - Pain in jaw [Unknown]
  - Benign prostatic hyperplasia [Unknown]
  - Breast cancer male [Unknown]
  - Second primary malignancy [Unknown]
  - Rectal haemorrhage [Unknown]
  - Vertebral osteophyte [Unknown]
  - Arthropathy [Unknown]
  - Paraplegia [Unknown]
  - Orthostatic hypotension [Unknown]
  - Depression [Unknown]
  - Cervical myelopathy [Unknown]
  - Frontotemporal dementia [Unknown]
  - Escherichia infection [Unknown]
  - Osteomyelitis [Unknown]
  - Scoliosis [Unknown]
  - Coordination abnormal [Unknown]
  - Spinal claudication [Unknown]
  - Quadriplegia [Unknown]
  - Confusional state [Unknown]
  - Primary sequestrum [Unknown]
  - Alveolar osteitis [Unknown]
  - Bone swelling [Unknown]
  - Impaired healing [Unknown]
  - Loose tooth [Unknown]
  - Renal failure [Unknown]
  - Dizziness [Unknown]
  - Hypernatraemia [Unknown]
  - Hyponatraemia [Unknown]
  - Bone pain [Unknown]
  - Headache [Unknown]
  - Dysuria [Unknown]
  - Tinnitus [Unknown]
  - Neck pain [Unknown]
  - Cardiac murmur [Unknown]
  - Chest pain [Unknown]
  - Back pain [Unknown]
  - Carotid bruit [Unknown]
  - Pigmentation disorder [Unknown]
  - Hypoaesthesia [Unknown]
  - Gait disturbance [Unknown]
  - Oedema peripheral [Unknown]
  - Constipation [Unknown]
  - Faecal incontinence [Unknown]
  - Arthralgia [Unknown]
  - Fatigue [Unknown]
  - Muscle spasms [Unknown]
  - Hot flush [Unknown]
